FAERS Safety Report 17098913 (Version 1)
Quarter: 2019Q4

REPORT INFORMATION
  Report Type: Spontaneous
  Country: US (occurrence: US)
  Receive Date: 20191106
  Receipt Date: 20191106
  Transmission Date: 20200122
  Serious: No
  Sender: FDA-Public Use
  Company Number: None

PATIENT
  Age: 72 Year
  Sex: Female

DRUGS (1)
  1. KISQALI [Suspect]
     Active Substance: RIBOCICLIB
     Route: 048
     Dates: start: 201902

REACTIONS (3)
  - Muscle neoplasm [None]
  - Therapy cessation [None]
  - Tumour excision [None]

NARRATIVE: CASE EVENT DATE: 20191106
